FAERS Safety Report 16038442 (Version 2)
Quarter: 2019Q1

REPORT INFORMATION
  Report Type: Report from Study
  Country: US (occurrence: US)
  Receive Date: 20190305
  Receipt Date: 20190329
  Transmission Date: 20190418
  Serious: Yes (Other)
  Sender: FDA-Public Use
  Company Number: US-SHIRE-US201906264

PATIENT
  Age: 31 Year
  Sex: Male

DRUGS (2)
  1. GATTEX [Suspect]
     Active Substance: TEDUGLUTIDE\WATER
     Dosage: 0.1817, 1X/DAY:QD
     Route: 058
     Dates: start: 20170818
  2. GATTEX [Suspect]
     Active Substance: TEDUGLUTIDE\WATER
     Indication: SHORT-BOWEL SYNDROME
     Dosage: 1.8 MILLIGRAM, 1X/DAY:QD
     Route: 058
     Dates: start: 20170817

REACTIONS (4)
  - Constipation [Unknown]
  - Stoma complication [Recovering/Resolving]
  - Intestinal obstruction [Recovered/Resolved]
  - Vomiting [Recovered/Resolved]

NARRATIVE: CASE EVENT DATE: 20180201
